FAERS Safety Report 21830371 (Version 4)
Quarter: 2023Q1

REPORT INFORMATION
  Report Type: Spontaneous
  Country: JP (occurrence: JP)
  Receive Date: 20230106
  Receipt Date: 20230219
  Transmission Date: 20230417
  Serious: No
  Sender: FDA-Public Use
  Company Number: JP-JNJFOC-20221250414

PATIENT
  Age: 86 Year
  Sex: Female
  Weight: 36 kg

DRUGS (1)
  1. SIMPONI [Suspect]
     Active Substance: GOLIMUMAB
     Indication: Rheumatoid arthritis
     Dosage: DOSE UNKNOWN?STRENGTH: 50.00 MG / 0.50 ML
     Route: 058
     Dates: start: 20221024

REACTIONS (5)
  - Device infusion issue [Unknown]
  - Underdose [Unknown]
  - Device deployment issue [Recovered/Resolved]
  - Injury associated with device [Recovered/Resolved]
  - Needle issue [Unknown]

NARRATIVE: CASE EVENT DATE: 20221221
